FAERS Safety Report 4397074-3 (Version None)
Quarter: 2004Q3

REPORT INFORMATION
  Report Type: 
  Country: None (occurrence: None)
  Receive Date: 20040714
  Receipt Date: 20040609
  Transmission Date: 20050211
  Serious: Yes (Life-Threatening, Hospitalization)
  Sender: FDA-Public Use
  Company Number: PHBS2004JP07751

PATIENT
  Age: 58 Year
  Sex: Male
  Weight: 70 kg

DRUGS (7)
  1. TEGRETOL [Suspect]
     Indication: HERPES ZOSTER
     Dosage: 200 MG/DAY
     Route: 048
     Dates: start: 20030804, end: 20030901
  2. AMITRIPTYLINE HYDROCHLORIDE [Concomitant]
     Indication: HERPES ZOSTER
     Route: 048
  3. VOLTAREN [Concomitant]
     Indication: HERPES ZOSTER
     Dosage: 100 MG/DAY
     Route: 048
     Dates: start: 20030804, end: 20030901
  4. ETODOLAC [Concomitant]
     Indication: HERPES ZOSTER
     Dosage: 400 MG/DAY
     Route: 048
     Dates: start: 20030804, end: 20030901
  5. NEUROTROPIN [Concomitant]
     Indication: HERPES ZOSTER
     Dosage: 16 DF/DAY
     Route: 048
     Dates: start: 20030804, end: 20030901
  6. TRYPTANOL [Concomitant]
     Indication: HERPES ZOSTER
     Dosage: 25 MG/DAY
     Route: 048
     Dates: start: 20030804, end: 20030901
  7. KEISHIKASHAKUYAKUDAIOUTOU [Concomitant]
     Indication: HERPES ZOSTER
     Dosage: 7.5 G/DAY
     Route: 048
     Dates: start: 20030804, end: 20030901

REACTIONS (8)
  - ACUTE RESPIRATORY DISTRESS SYNDROME [None]
  - DYSPNOEA [None]
  - HYPOXIA [None]
  - INTERSTITIAL LUNG DISEASE [None]
  - LYMPHOCYTE STIMULATION TEST POSITIVE [None]
  - PLEURAL EFFUSION [None]
  - PYREXIA [None]
  - THERAPY NON-RESPONDER [None]
